FAERS Safety Report 4981815-8 (Version None)
Quarter: 2006Q2

REPORT INFORMATION
  Report Type: 
  Country: None (occurrence: None)
  Receive Date: 20060420
  Receipt Date: 20060420
  Transmission Date: 20061013
  Serious: Yes (Hospitalization)
  Sender: FDA-Public Use
  Company Number: None

PATIENT
  Age: 62 Year
  Sex: Male

DRUGS (10)
  1. ROSUVASTATIN 20 MG ASTRAZENECA [Suspect]
     Indication: LIPIDS INCREASED
     Dosage: 20 MG DAILY PO
     Route: 048
  2. ESOMEPRAZOLE [Concomitant]
  3. SINGULAIR [Concomitant]
  4. ALBUTEROL [Concomitant]
  5. THEOPHYLLINE [Concomitant]
  6. CLOPIDOGREL [Concomitant]
  7. ROSIGLITAZONE [Concomitant]
  8. AMLODIPINE [Concomitant]
  9. BENAZEPRIL HYDROCHLORIDE [Concomitant]
  10. ALPRAZOLAM [Concomitant]

REACTIONS (3)
  - ALANINE AMINOTRANSFERASE INCREASED [None]
  - ASPARTATE AMINOTRANSFERASE INCREASED [None]
  - RHABDOMYOLYSIS [None]
